FAERS Safety Report 4950392-X (Version None)
Quarter: 2006Q1

REPORT INFORMATION
  Report Type: 
  Country: None (occurrence: None)
  Receive Date: 20060322
  Receipt Date: 20050722
  Transmission Date: 20060701
  Serious: Yes (Hospitalization, Other)
  Sender: FDA-Public Use
  Company Number: PHBS2005JP10786

PATIENT
  Age: 74 Year
  Sex: Male
  Weight: 61 kg

DRUGS (6)
  1. LOCHOL [Suspect]
     Indication: HYPERCHOLESTEROLAEMIA
     Dosage: 20 MG/DAY
     Route: 048
     Dates: start: 19991021, end: 20050517
  2. DAONIL [Concomitant]
     Indication: DIABETES MELLITUS NON-INSULIN-DEPENDENT
     Dosage: 5 MG/DAY
     Route: 048
     Dates: start: 19990225
  3. BASEN [Concomitant]
     Indication: DIABETES MELLITUS NON-INSULIN-DEPENDENT
     Dosage: 0.6 MG/DAY
     Route: 048
     Dates: start: 19981224
  4. ACTOS [Concomitant]
     Indication: DIABETES MELLITUS NON-INSULIN-DEPENDENT
     Dosage: 30 MG/DAY
     Route: 048
     Dates: start: 20000928
  5. ASPIRIN [Concomitant]
     Indication: ARTERIOSCLEROSIS
     Dosage: 100 MG/DAY
     Route: 048
     Dates: start: 20021219
  6. LANSOPRAZOLE [Concomitant]
     Indication: REFLUX OESOPHAGITIS
     Dosage: 15 MG/DAY
     Route: 048
     Dates: start: 20050317

REACTIONS (7)
  - BLOOD CREATINE PHOSPHOKINASE INCREASED [None]
  - DYSPNOEA EXERTIONAL [None]
  - EMPHYSEMA [None]
  - HYPONATRAEMIA [None]
  - INAPPROPRIATE ANTIDIURETIC HORMONE SECRETION [None]
  - RHABDOMYOLYSIS [None]
  - SMALL CELL LUNG CANCER STAGE UNSPECIFIED [None]
